FAERS Safety Report 6998145-5 (Version None)
Quarter: 2010Q3

REPORT INFORMATION
  Report Type: 
  Country: None (occurrence: None)
  Receive Date: 20100920
  Receipt Date: 20090721
  Transmission Date: 20110219
  Serious: Yes (Other)
  Sender: FDA-Public Use
  Company Number: US-ASTRAZENECA-2007UW04804

PATIENT
  Sex: Female

DRUGS (9)
  1. SEROQUEL [Suspect]
     Route: 048
     Dates: start: 20020904, end: 20061026
  2. DEPAKOTE [Concomitant]
     Dates: start: 20020919, end: 20050315
  3. LORAZEPAM [Concomitant]
     Dates: start: 20020919
  4. CELEXA [Concomitant]
     Dosage: 20MG-40 MG
     Dates: start: 20020904
  5. XANAX [Concomitant]
     Dates: start: 20061026
  6. RISPERDAL [Concomitant]
     Dosage: 0.5 MG FOR 5 DAYS THEN 2 TABS PO QD
     Dates: start: 20061026
  7. TRAZODONE HCL [Concomitant]
     Dates: start: 20070913
  8. EFFEXOR [Concomitant]
  9. GEODON [Concomitant]
     Dates: start: 20050325

REACTIONS (3)
  - DIABETES MELLITUS [None]
  - DIABETIC KETOACIDOSIS [None]
  - PANCREATITIS [None]
